FAERS Safety Report 6888134-3 (Version None)
Quarter: 2010Q3

REPORT INFORMATION
  Report Type: 
  Country: None (occurrence: None)
  Receive Date: 20100730
  Receipt Date: 20100720
  Transmission Date: 20110219
  Serious: Yes (Other)
  Sender: FDA-Public Use
  Company Number: JP-MERCK-1007USA01942

PATIENT
  Age: 37 Year
  Sex: Female

DRUGS (5)
  1. PEPCID [Suspect]
     Route: 048
     Dates: start: 20100410
  2. CELCOX [Suspect]
     Indication: BACK PAIN
     Route: 048
     Dates: start: 20100406, end: 20100712
  3. NORVASC [Concomitant]
     Route: 048
     Dates: start: 20100410
  4. KEISHI-KA-SHAKUYAKU-DAIO-TO [Concomitant]
     Route: 048
     Dates: start: 20100510
  5. MUCOSTA [Concomitant]
     Route: 065
     Dates: start: 20100410, end: 20100702

REACTIONS (1)
  - DEEP VEIN THROMBOSIS [None]
